FAERS Safety Report 9815449 (Version 1)
Quarter: 2014Q1

REPORT INFORMATION
  Report Type: Spontaneous
  Country: US (occurrence: US)
  Receive Date: 20140114
  Receipt Date: 20140114
  Transmission Date: 20141002
  Serious: No
  Sender: FDA-Public Use
  Company Number: US-PFIZER INC-2014006550

PATIENT
  Age: 71 Year
  Sex: Male

DRUGS (9)
  1. VERAPAMIL HCL [Suspect]
     Dosage: UNK
  2. HYDROCHLOROTHIAZIDE [Suspect]
     Dosage: UNK
  3. NEXIUM [Suspect]
     Dosage: UNK
  4. MAGNESIUM [Suspect]
     Dosage: UNK
  5. LUMIGAN [Suspect]
     Dosage: UNK
  6. PRO-AIR [Suspect]
     Dosage: UNK
  7. DULERA [Suspect]
     Dosage: UNK
  8. D-3 [Suspect]
     Dosage: UNK
  9. COQ-10 [Suspect]
     Dosage: UNK

REACTIONS (1)
  - Drug hypersensitivity [Unknown]
